FAERS Safety Report 21759743 (Version 16)
Quarter: 2023Q4

REPORT INFORMATION
  Report Type: Spontaneous
  Country: CA (occurrence: CA)
  Receive Date: 20221221
  Receipt Date: 20231025
  Transmission Date: 20240110
  Serious: Yes (Hospitalization, Other)
  Sender: FDA-Public Use
  Company Number: CA-CELLTRION INC.-2021CA016846

PATIENT

DRUGS (40)
  1. INFLECTRA [Suspect]
     Active Substance: INFLIXIMAB-DYYB
     Indication: Juvenile idiopathic arthritis
     Dosage: 3 MG/KG, 0 WEEK DOSE
     Route: 042
     Dates: start: 20190702, end: 20190702
  2. INFLECTRA [Suspect]
     Active Substance: INFLIXIMAB-DYYB
     Indication: Rheumatoid arthritis
     Dosage: 3 MG/KG, 2 WEEK DOSE
     Route: 042
     Dates: start: 20190716, end: 20190716
  3. INFLECTRA [Suspect]
     Active Substance: INFLIXIMAB-DYYB
     Dosage: 3 MG/KG, 6 WEEK DOSE
     Route: 042
     Dates: start: 20190813, end: 20190813
  4. INFLECTRA [Suspect]
     Active Substance: INFLIXIMAB-DYYB
     Dosage: 3 MG/KG, EVERY 8 WEEKS
     Route: 042
     Dates: start: 20191008, end: 20191008
  5. INFLECTRA [Suspect]
     Active Substance: INFLIXIMAB-DYYB
     Dosage: 3 MG/KG, EVERY 6 WEEKS
     Route: 042
     Dates: start: 20191119, end: 20200414
  6. INFLECTRA [Suspect]
     Active Substance: INFLIXIMAB-DYYB
     Dosage: 5 MG/KG, EVERY 6 WEEKS
     Route: 042
     Dates: start: 20200526, end: 20200707
  7. INFLECTRA [Suspect]
     Active Substance: INFLIXIMAB-DYYB
     Dosage: 5 MG/KG, EVERY 4 WEEKS
     Route: 042
     Dates: start: 20200821, end: 20201029
  8. INFLECTRA [Suspect]
     Active Substance: INFLIXIMAB-DYYB
     Dosage: 7500 UG/KG, EVERY 4 WEEKS
     Route: 041
     Dates: start: 20201125
  9. INFLECTRA [Suspect]
     Active Substance: INFLIXIMAB-DYYB
     Dosage: 7500 UG/KG, EVERY 4 WEEKS
     Route: 041
     Dates: start: 20201126
  10. INFLECTRA [Suspect]
     Active Substance: INFLIXIMAB-DYYB
     Dosage: 7500 UG/KG, EVERY 4 WEEKS
     Route: 041
     Dates: start: 20210903
  11. INFLECTRA [Suspect]
     Active Substance: INFLIXIMAB-DYYB
     Dosage: 7500 UG/KG, EVERY 4 WEEKS
     Route: 041
     Dates: start: 20210930
  12. INFLECTRA [Suspect]
     Active Substance: INFLIXIMAB-DYYB
     Dosage: 7500 UG/KG, EVERY 4 WEEKS
     Route: 041
     Dates: start: 20211028
  13. INFLECTRA [Suspect]
     Active Substance: INFLIXIMAB-DYYB
     Dosage: 7500 UG/KG, EVERY 4 WEEKS
     Route: 042
     Dates: start: 20211126
  14. INFLECTRA [Suspect]
     Active Substance: INFLIXIMAB-DYYB
     Dosage: 7500 UG/KG, EVERY 4 WEEKS
     Route: 041
     Dates: start: 20211220
  15. INFLECTRA [Suspect]
     Active Substance: INFLIXIMAB-DYYB
     Dosage: 7500 UG/KG, EVERY 4 WEEKS
     Route: 042
     Dates: start: 20211220
  16. INFLECTRA [Suspect]
     Active Substance: INFLIXIMAB-DYYB
     Dosage: 7500 UG/KG, EVERY 4 WEEKS
     Route: 042
     Dates: start: 20220127
  17. INFLECTRA [Suspect]
     Active Substance: INFLIXIMAB-DYYB
     Dosage: 498 MG (7500 UG/KG, EVERY 4 WEEKS)
     Route: 042
     Dates: start: 20220712
  18. INFLECTRA [Suspect]
     Active Substance: INFLIXIMAB-DYYB
     Dosage: 7500 UG/KG, EVERY 4 WEEKS
     Route: 042
     Dates: start: 20220810
  19. INFLECTRA [Suspect]
     Active Substance: INFLIXIMAB-DYYB
     Dosage: 7500 UG/KG, EVERY 4 WEEKS
     Route: 042
     Dates: start: 20221004
  20. INFLECTRA [Suspect]
     Active Substance: INFLIXIMAB-DYYB
     Dosage: 7500 UG/KG, EVERY 4 WEEKS
     Route: 042
     Dates: start: 20221117
  21. INFLECTRA [Suspect]
     Active Substance: INFLIXIMAB-DYYB
     Dosage: 7500 UG/KG, EVERY 4 WEEKS
     Route: 042
     Dates: start: 20221229
  22. INFLECTRA [Suspect]
     Active Substance: INFLIXIMAB-DYYB
     Dosage: 502.5MG (7.5MG/KG EVERY 4 WEEKS)
     Route: 042
     Dates: start: 20230302
  23. INFLECTRA [Suspect]
     Active Substance: INFLIXIMAB-DYYB
     Dosage: 502.5MG (7.5MG/KG EVERY 4 WEEKS)
     Route: 042
     Dates: start: 20230302
  24. INFLECTRA [Suspect]
     Active Substance: INFLIXIMAB-DYYB
     Dosage: 498.75 MG, EVERY 4 WEEKS
     Route: 042
     Dates: start: 20230404
  25. INFLECTRA [Suspect]
     Active Substance: INFLIXIMAB-DYYB
     Dosage: 498.75 MG, EVERY 4 WEEKS
     Route: 042
     Dates: start: 20230503
  26. INFLECTRA [Suspect]
     Active Substance: INFLIXIMAB-DYYB
     Dosage: 498.75 MG, EVERY 4 WEEKS
     Route: 042
     Dates: start: 20230503
  27. INFLECTRA [Suspect]
     Active Substance: INFLIXIMAB-DYYB
     Dosage: 495 MG (7.5 MG/KG), AFTER 6 WEEKS
     Route: 042
     Dates: start: 20230620
  28. INFLECTRA [Suspect]
     Active Substance: INFLIXIMAB-DYYB
     Dosage: 510 MG AFTER 8 WEEKS
     Route: 042
     Dates: start: 20230815
  29. INFLECTRA [Suspect]
     Active Substance: INFLIXIMAB-DYYB
     Dosage: 502.5 MG, EVERY 4 WEEKS
     Route: 042
     Dates: start: 20230920
  30. INFLECTRA [Suspect]
     Active Substance: INFLIXIMAB-DYYB
     Dosage: 502.5 MG, EVERY 4 WEEKS
     Route: 042
     Dates: start: 20230920
  31. INFLECTRA [Suspect]
     Active Substance: INFLIXIMAB-DYYB
     Dosage: 502.5 MG, EVERY 4 WEEKS
     Route: 042
     Dates: start: 20230920
  32. INFLECTRA [Suspect]
     Active Substance: INFLIXIMAB-DYYB
     Dosage: 7500 UG/KG EVERY 4 WEEK( 502.5MG, AFTER 3 WEEKS AND 5 DAYS)
     Route: 042
     Dates: start: 20231016
  33. CALCIUM CARBONATE\CHOLECALCIFEROL [Concomitant]
     Active Substance: CALCIUM CARBONATE\CHOLECALCIFEROL
     Dosage: 1 DF, UNKNOWN DOSE AND FREQUENCY
     Route: 065
  34. CELEXA [Concomitant]
     Active Substance: CITALOPRAM HYDROBROMIDE
     Indication: Anxiety
     Dosage: 20 MG, UNKNOWN FREQUENCY
     Route: 065
     Dates: start: 20200730
  35. CELEBREX [Concomitant]
     Active Substance: CELECOXIB
     Dosage: 1 DF, AS NEEDED (UNKNOWN DOSE, PRN)
     Route: 065
  36. FOLIC ACID [Concomitant]
     Active Substance: FOLIC ACID
     Dosage: 5 MG, 3X/WEEK
     Route: 065
  37. HYDROXYCHLOROQUINE [Concomitant]
     Active Substance: HYDROXYCHLOROQUINE
     Dosage: 200 MG 6 TIMES A WEEK
     Route: 065
     Dates: start: 20161025
  38. HYDROXYCHLOROQUINE [Concomitant]
     Active Substance: HYDROXYCHLOROQUINE
     Dosage: 400 MG ONCE A WEEK
     Route: 065
  39. METHOTREXATE [Concomitant]
     Active Substance: METHOTREXATE
     Dosage: 25 MG, WEEKLY
     Route: 058
     Dates: start: 20160726
  40. PREDNISONE [Concomitant]
     Active Substance: PREDNISONE
     Dosage: 1 DF, DOSAGE NOT AVAILABLE
     Route: 065

REACTIONS (24)
  - Pharyngitis [Not Recovered/Not Resolved]
  - Bacteraemia [Not Recovered/Not Resolved]
  - Pyrexia [Not Recovered/Not Resolved]
  - Oropharyngeal pain [Not Recovered/Not Resolved]
  - Myositis [Recovering/Resolving]
  - Panniculitis [Recovering/Resolving]
  - Bacterial infection [Not Recovered/Not Resolved]
  - Rhinorrhoea [Not Recovered/Not Resolved]
  - COVID-19 [Recovered/Resolved]
  - Arthralgia [Not Recovered/Not Resolved]
  - Migraine [Unknown]
  - Ear pain [Not Recovered/Not Resolved]
  - Influenza [Recovered/Resolved]
  - Nasopharyngitis [Recovered/Resolved]
  - Erythema [Recovered/Resolved]
  - Feeling hot [Recovered/Resolved]
  - Cervicitis [Recovering/Resolving]
  - Fatigue [Unknown]
  - Sleep disorder due to general medical condition, insomnia type [Unknown]
  - Nausea [Recovering/Resolving]
  - Dizziness [Recovering/Resolving]
  - Allergic respiratory symptom [Not Recovered/Not Resolved]
  - Off label use [Unknown]
  - Inappropriate schedule of product administration [Unknown]

NARRATIVE: CASE EVENT DATE: 20191119
